FAERS Safety Report 9819858 (Version 1)
Quarter: 2014Q1

REPORT INFORMATION
  Report Type: Spontaneous
  Country: US (occurrence: None)
  Receive Date: 20140114
  Receipt Date: 20140114
  Transmission Date: 20141002
  Serious: No
  Sender: FDA-Public Use
  Company Number: None

PATIENT
  Age: 40 Year
  Sex: Female

DRUGS (1)
  1. HUMIRA PEN 40 MG [Suspect]
     Dosage: 40 MG INJECTABLE SUBCUTANEOUS 057 QOW
     Route: 058
     Dates: start: 20130718

REACTIONS (4)
  - Rash [None]
  - Rash [None]
  - Arthralgia [None]
  - Dizziness [None]
